FAERS Safety Report 17456804 (Version 1)
Quarter: 2020Q1

REPORT INFORMATION
  Report Type: Spontaneous
  Country: US (occurrence: US)
  Receive Date: 20200225
  Receipt Date: 20200225
  Transmission Date: 20200409
  Serious: No
  Sender: FDA-Public Use
  Company Number: US-BAYER-2020-033181

PATIENT
  Age: 10 Year
  Sex: Female

DRUGS (3)
  1. NEXAVAR [Suspect]
     Active Substance: SORAFENIB
     Indication: MALIGNANT CONNECTIVE TISSUE NEOPLASM
     Dosage: DAILY DOSE 400 MG
     Route: 048
     Dates: start: 20200129
  2. NEXAVAR [Suspect]
     Active Substance: SORAFENIB
     Indication: SOFT TISSUE NEOPLASM
  3. VITAMINS NOS [Concomitant]
     Active Substance: VITAMINS
     Dosage: UNK
     Dates: start: 20200129

REACTIONS (6)
  - Product use in unapproved indication [None]
  - Product use issue [None]
  - Skin exfoliation [Recovering/Resolving]
  - Erythema [None]
  - Alopecia [Not Recovered/Not Resolved]
  - Off label use [None]

NARRATIVE: CASE EVENT DATE: 20200129
